FAERS Safety Report 4345205-3 (Version None)
Quarter: 2004Q2

REPORT INFORMATION
  Report Type: 
  Country: None (occurrence: None)
  Receive Date: 20040420
  Receipt Date: 20040413
  Transmission Date: 20050107
  Serious: Yes (Hospitalization)
  Sender: FDA-Public Use
  Company Number: 2004CG00713

PATIENT
  Age: 47 Year
  Sex: Male
  Weight: 75 kg

DRUGS (2)
  1. ZOLADEX [Suspect]
     Dosage: 10.8 MG Q3MO SQ
     Dates: start: 20010415
  2. METFORMINE ^MERCK^ [Suspect]
     Dosage: 1700 MG DAILY PO
     Route: 048
     Dates: start: 19980615

REACTIONS (1)
  - ECZEMA [None]
